FAERS Safety Report 15017346 (Version 2)
Quarter: 2018Q4

REPORT INFORMATION
  Report Type: Spontaneous
  Country: US (occurrence: US)
  Receive Date: 20180615
  Receipt Date: 20181218
  Transmission Date: 20190204
  Serious: Yes (Disabling, Other)
  Sender: FDA-Public Use
  Company Number: US-OTSUKA-2018_015568

PATIENT
  Sex: Female

DRUGS (3)
  1. ARIPIPRAZOLE. [Concomitant]
     Active Substance: ARIPIPRAZOLE
     Indication: PRODUCT USED FOR UNKNOWN INDICATION
     Dosage: UNK
     Route: 065
     Dates: start: 20150525
  2. ABILIFY [Suspect]
     Active Substance: ARIPIPRAZOLE
     Indication: SCHIZOPHRENIA
     Dosage: 5 MG, QD
     Route: 065
     Dates: start: 200501
  3. ABILIFY [Suspect]
     Active Substance: ARIPIPRAZOLE
     Dosage: 30 MG, QD
     Route: 065
     Dates: end: 201801

REACTIONS (16)
  - Disability [Unknown]
  - Compulsive shopping [Recovered/Resolved]
  - Hypersexuality [Unknown]
  - Gambling disorder [Recovered/Resolved]
  - Obsessive-compulsive disorder [Recovered/Resolved]
  - Anhedonia [Unknown]
  - Sexual dysfunction [Recovered/Resolved]
  - Anxiety [Unknown]
  - Economic problem [Unknown]
  - Condition aggravated [Unknown]
  - Injury [Unknown]
  - Pain [Unknown]
  - Eating disorder [Recovered/Resolved]
  - Compulsive sexual behaviour [Recovered/Resolved]
  - Gastrointestinal surgery [Unknown]
  - Bankruptcy [Unknown]

NARRATIVE: CASE EVENT DATE: 2005
